FAERS Safety Report 12271482 (Version 2)
Quarter: 2016Q2

REPORT INFORMATION
  Report Type: Report from Study
  Country: US (occurrence: US)
  Receive Date: 20160415
  Receipt Date: 20160519
  Transmission Date: 20160815
  Serious: Yes (Death)
  Sender: FDA-Public Use
  Company Number: US-ACTELION-A-US2016-134657

PATIENT
  Age: 75 Year
  Sex: Female

DRUGS (2)
  1. VENTAVIS [Suspect]
     Active Substance: ILOPROST
     Indication: PULMONARY ARTERIAL HYPERTENSION
     Dosage: 5 MCG 6-9 TIMES A DAY
     Route: 055
     Dates: start: 20140925
  2. VENTAVIS [Suspect]
     Active Substance: ILOPROST
     Dosage: 5 MCG, 3-4 TIMES A DAY
     Route: 055
     Dates: end: 20160330

REACTIONS (1)
  - Death [Fatal]

NARRATIVE: CASE EVENT DATE: 20160330
